FAERS Safety Report 14974618 (Version 1)
Quarter: 2018Q2

REPORT INFORMATION
  Report Type: Spontaneous
  Country: US (occurrence: US)
  Receive Date: 20180516
  Receipt Date: 20180516
  Transmission Date: 20180711
  Serious: Yes (Hospitalization)
  Sender: FDA-Public Use
  Company Number: None

PATIENT
  Age: 76 Year
  Sex: Male
  Weight: 59 kg

DRUGS (2)
  1. METFORMIN [Concomitant]
     Active Substance: METFORMIN HYDROCHLORIDE
  2. DICLOWAL 100 MG DICLOFENAC SOD SUPPOSITORY [Suspect]
     Active Substance: DICLOFENAC SODIUM
     Indication: MUSCULOSKELETAL PAIN
     Dosage: ?          QUANTITY:1 SUPPOSITORY(IES);OTHER FREQUENCY:TWICE;?
     Route: 054
     Dates: start: 20171006, end: 20171006

REACTIONS (4)
  - Haematochezia [None]
  - Gastric haemorrhage [None]
  - Haematemesis [None]
  - Melaena [None]

NARRATIVE: CASE EVENT DATE: 20171007
